FAERS Safety Report 18056704 (Version 6)
Quarter: 2021Q2

REPORT INFORMATION
  Report Type: Report from Study
  Country: GB (occurrence: GB)
  Receive Date: 20200722
  Receipt Date: 20210615
  Transmission Date: 20210717
  Serious: Yes (Hospitalization)
  Sender: FDA-Public Use
  Company Number: NVSC2020GB206134

PATIENT
  Sex: Female

DRUGS (3)
  1. OMNITROPE [Suspect]
     Active Substance: SOMATROPIN
     Indication: PRADER-WILLI SYNDROME
     Dosage: 0.2 MG, QD
     Route: 058
     Dates: start: 20200602
  2. OMNITROPE [Suspect]
     Active Substance: SOMATROPIN
     Indication: HORMONE THERAPY
  3. OMNITROPE [Suspect]
     Active Substance: SOMATROPIN
     Indication: GROWTH HORMONE DEFICIENCY
     Dosage: 0.3 MG, QD
     Route: 058

REACTIONS (4)
  - Oxygen saturation decreased [Unknown]
  - Product dose omission issue [Unknown]
  - Feeling abnormal [Unknown]
  - Dyspnoea [Unknown]
